FAERS Safety Report 6385302-4 (Version None)
Quarter: 2009Q4

REPORT INFORMATION
  Report Type: 
  Country: None (occurrence: None)
  Receive Date: 20091002
  Receipt Date: 20080821
  Transmission Date: 20100525
  Serious: No
  Sender: FDA-Public Use
  Company Number: US-ASTRAZENECA-2008UW17161

PATIENT
  Age: 73 Year
  Sex: Female

DRUGS (5)
  1. ARIMIDEX [Suspect]
     Indication: BREAST CANCER FEMALE
     Route: 048
     Dates: start: 20050101
  2. SIMVASTATIN [Concomitant]
  3. BLOOD PRESSURE MEDICINE [Concomitant]
  4. GLIPIZIDE [Concomitant]
  5. GLUCOPHAGE [Concomitant]

REACTIONS (4)
  - ARTHRITIS [None]
  - BLOOD PRESSURE INCREASED [None]
  - BODY HEIGHT DECREASED [None]
  - WEIGHT INCREASED [None]
